FAERS Safety Report 14764267 (Version 2)
Quarter: 2018Q2

REPORT INFORMATION
  Report Type: Spontaneous
  Country: SE (occurrence: ES)
  Receive Date: 20180416
  Receipt Date: 20180416
  Transmission Date: 20180711
  Serious: Yes (Life-Threatening, Hospitalization)
  Sender: FDA-Public Use
  Company Number: SE-ANIPHARMA-2018-ES-000032

PATIENT
  Age: 74 Year
  Sex: Male
  Weight: 56 kg

DRUGS (7)
  1. CANDESARTAN CILEXETIL. [Suspect]
     Active Substance: CANDESARTAN CILEXETIL
     Dosage: 32 MG
     Route: 048
     Dates: start: 20180214, end: 20180222
  2. NO MATCH(NO MATCH) [Concomitant]
     Dosage: 1 DF DAILY
     Dates: start: 20140604
  3. PANTOPRAZOLE [Concomitant]
     Active Substance: PANTOPRAZOLE
     Dosage: 1 DF DAILY
     Dates: start: 20120202
  4. CANDESARTAN CILEXETIL. [Suspect]
     Active Substance: CANDESARTAN CILEXETIL
     Indication: HYPERTENSION
     Dosage: 32 MG
     Route: 048
  5. DUAKLIR GENUAIR(ACLIDINIUM BROMIDE, FORMOTEROL FUMARATE DIHYDRATE) [Concomitant]
     Dosage: 1 DF BID
     Dates: start: 20160629
  6. AMCHAFIBRIN(TRANEXAMIC ACID) [Concomitant]
     Dates: start: 20171201
  7. (ATORVASTATIN) STRENGTH: 80MG [Suspect]
     Active Substance: ATORVASTATIN
     Dosage: 1 DF DAILY
     Route: 048
     Dates: start: 20140604

REACTIONS (1)
  - Pancreatitis acute [Recovering/Resolving]

NARRATIVE: CASE EVENT DATE: 20180222
